FAERS Safety Report 19959908 (Version 1)
Quarter: 2021Q4

REPORT INFORMATION
  Report Type: Report from Study
  Country: ES (occurrence: ES)
  Receive Date: 20211015
  Receipt Date: 20211015
  Transmission Date: 20220304
  Serious: Yes (Other)
  Sender: FDA-Public Use
  Company Number: ES-002147023-NVSC2021ES127361

PATIENT
  Age: 59 Year
  Sex: Female
  Weight: 126 kg

DRUGS (6)
  1. CIPROFLOXACIN [Suspect]
     Active Substance: CIPROFLOXACIN
     Indication: Tumour ulceration
     Dosage: 500 MG, Q12H
     Route: 065
     Dates: start: 20200724, end: 20200807
  2. CIPROFLOXACIN [Suspect]
     Active Substance: CIPROFLOXACIN
     Indication: Superinfection
     Dosage: 500 MG, Q12H
     Route: 065
     Dates: start: 20201209, end: 20201209
  3. ALPELISIB [Suspect]
     Active Substance: ALPELISIB
     Indication: Breast cancer metastatic
     Dosage: 300 MG, Q24H
     Route: 065
     Dates: start: 20200704, end: 20200807
  4. ALPELISIB [Suspect]
     Active Substance: ALPELISIB
     Dosage: 300 MG
     Route: 048
     Dates: start: 20200703
  5. ALPELISIB [Suspect]
     Active Substance: ALPELISIB
     Dosage: 250 MG, Q24H
     Route: 065
     Dates: start: 20200826
  6. FULVESTRANT [Concomitant]
     Active Substance: FULVESTRANT
     Indication: Product used for unknown indication
     Dosage: UNK
     Route: 065

REACTIONS (6)
  - Tumour ulceration [Unknown]
  - Superinfection [Recovered/Resolved]
  - Stomatitis [Recovered/Resolved]
  - Dermatitis [Unknown]
  - Rash [Recovered/Resolved]
  - Hyperglycaemia [Recovered/Resolved]

NARRATIVE: CASE EVENT DATE: 20200724
